FAERS Safety Report 16566327 (Version 1)
Quarter: 2019Q3

REPORT INFORMATION
  Report Type: Spontaneous
  Country: NL (occurrence: NL)
  Receive Date: 20190712
  Receipt Date: 20190712
  Transmission Date: 20191004
  Serious: Yes (Other)
  Sender: FDA-Public Use
  Company Number: NL-MYLANLABS-2019M1064375

PATIENT
  Sex: Male
  Weight: 89 kg

DRUGS (1)
  1. CLINDAMYCIN. [Suspect]
     Active Substance: CLINDAMYCIN
     Indication: ORTHODONTIC PROCEDURE
     Dosage: 4D 300MG
     Route: 048
     Dates: start: 20190220, end: 20190225

REACTIONS (3)
  - Polyarthritis [Recovering/Resolving]
  - Hepatitis [Recovering/Resolving]
  - Pseudomembranous colitis [Recovering/Resolving]
